FAERS Safety Report 8836606 (Version 1)
Quarter: 2012Q4

REPORT INFORMATION
  Report Type: Spontaneous
  Country: US (occurrence: None)
  Receive Date: 20121012
  Receipt Date: 20121012
  Transmission Date: 20130627
  Serious: Yes (Hospitalization)
  Sender: FDA-Public Use
  Company Number: None

PATIENT
  Sex: Female
  Weight: 99.5 kg

DRUGS (1)
  1. METHYLPREDNISOLONE ACETATE [Suspect]
     Dates: start: 20120918

REACTIONS (6)
  - Headache [None]
  - Musculoskeletal stiffness [None]
  - Phonophobia [None]
  - Product quality issue [None]
  - CSF white blood cell count increased [None]
  - CSF protein increased [None]
